FAERS Safety Report 9147330 (Version 2)
Quarter: 2013Q2

REPORT INFORMATION
  Report Type: Spontaneous
  Country: US (occurrence: US)
  Receive Date: 20130307
  Receipt Date: 20130411
  Transmission Date: 20140414
  Serious: Yes (Other)
  Sender: FDA-Public Use
  Company Number: US-GLAXOSMITHKLINE-A1010631A

PATIENT
  Sex: Female

DRUGS (2)
  1. FLOLAN [Suspect]
     Indication: PRODUCT USED FOR UNKNOWN INDICATION
     Dosage: 20NGKM CONTINUOUS
     Route: 042
     Dates: start: 20090521
  2. ANTIBIOTICS [Concomitant]

REACTIONS (3)
  - Infusion site infection [Recovered/Resolved]
  - Catheter site infection [Unknown]
  - Bacterial test positive [Unknown]
